FAERS Safety Report 9282710 (Version 1)
Quarter: 2013Q2

REPORT INFORMATION
  Report Type: Spontaneous
  Country: US (occurrence: None)
  Receive Date: 20130509
  Receipt Date: 20130509
  Transmission Date: 20140414
  Serious: Yes (Other)
  Sender: FDA-Public Use
  Company Number: None

PATIENT
  Age: 70 Year
  Sex: Female

DRUGS (15)
  1. STIVARGA 40 MG BAYER [Suspect]
     Route: 048
  2. BISACODYL SUPPOSITORIES [Concomitant]
  3. MORPHINE [Concomitant]
  4. LORAZEPAM [Concomitant]
  5. PROCHLORPERAZINE [Concomitant]
  6. ALPRAZOLAM [Concomitant]
  7. LISINOPRIL [Concomitant]
  8. BACTRIM [Concomitant]
  9. PREDNISONE [Concomitant]
  10. CLINDAMYCIN [Concomitant]
  11. MEGACE [Concomitant]
  12. ZOLPIDEM [Concomitant]
  13. DURAGESIC [Concomitant]
  14. CITALOPRAM [Concomitant]
  15. ZYRTEC [Concomitant]

REACTIONS (2)
  - Colon cancer [None]
  - Malignant neoplasm progression [None]
